FAERS Safety Report 5645778-4 (Version None)
Quarter: 2008Q1

REPORT INFORMATION
  Report Type: 
  Country: None (occurrence: None)
  Receive Date: 20080229
  Receipt Date: 20080219
  Transmission Date: 20080703
  Serious: Yes (Other)
  Sender: FDA-Public Use
  Company Number: US-PFIZER INC-2007106033

PATIENT
  Sex: Female
  Weight: 52.2 kg

DRUGS (6)
  1. DILANTIN [Suspect]
     Indication: CONVULSION
  2. ANTIBIOTICS [Suspect]
     Indication: CYSTITIS
  3. PHENOBARBITAL TAB [Concomitant]
  4. MORPHINE SULFATE [Concomitant]
  5. ALL OTHER THERAPEUTIC PRODUCTS [Concomitant]
     Indication: ELECTROLYTE SUBSTITUTION THERAPY
  6. ALL OTHER THERAPEUTIC PRODUCTS [Concomitant]
     Indication: PAIN

REACTIONS (7)
  - ANTICONVULSANT DRUG LEVEL DECREASED [None]
  - BALANCE DISORDER [None]
  - CYSTITIS [None]
  - DEHYDRATION [None]
  - DIZZINESS [None]
  - MALAISE [None]
  - TREMOR [None]
